FAERS Safety Report 4819169-X (Version None)
Quarter: 2005Q4

REPORT INFORMATION
  Report Type: 
  Country: None (occurrence: None)
  Receive Date: 20051102
  Receipt Date: 20051102
  Transmission Date: 20060501
  Serious: Yes (Disabling, Other)
  Sender: FDA-Public Use
  Company Number: None

PATIENT
  Age: 71 Year
  Sex: Female
  Weight: 68.0396 kg

DRUGS (2)
  1. LIPITOR [Suspect]
     Indication: BLOOD CHOLESTEROL INCREASED
     Dosage: 20MG  DAILY  PO
     Route: 048
     Dates: start: 20020801, end: 20050701
  2. LIPITOR [Suspect]
     Indication: LOW DENSITY LIPOPROTEIN INCREASED
     Dosage: 20MG  DAILY  PO
     Route: 048
     Dates: start: 20020801, end: 20050701

REACTIONS (10)
  - CHEST PAIN [None]
  - DECREASED ACTIVITY [None]
  - DYSPNOEA EXERTIONAL [None]
  - INSOMNIA [None]
  - NECK PAIN [None]
  - PAIN [None]
  - PAIN IN EXTREMITY [None]
  - PETECHIAE [None]
  - PITTING OEDEMA [None]
  - SHOULDER PAIN [None]
